FAERS Safety Report 5741750-4 (Version None)
Quarter: 2008Q2

REPORT INFORMATION
  Report Type: 
  Country: None (occurrence: None)
  Receive Date: 20080519
  Receipt Date: 20070321
  Transmission Date: 20081010
  Serious: No
  Sender: FDA-Public Use
  Company Number: US-BAYER-US-2007-010184

PATIENT
  Age: 52 Year
  Sex: Female

DRUGS (1)
  1. ULTRAVIST 300 [Suspect]
     Indication: COMPUTERISED TOMOGRAM
     Dosage: UNIT DOSE: 100 ML
     Route: 042
     Dates: start: 20070319, end: 20070319

REACTIONS (5)
  - BLOOD PRESSURE INCREASED [None]
  - HYPOAESTHESIA FACIAL [None]
  - NAUSEA [None]
  - PARAESTHESIA [None]
  - VOMITING [None]
